FAERS Safety Report 6319649-4 (Version None)
Quarter: 2009Q3

REPORT INFORMATION
  Report Type: 
  Country: None (occurrence: None)
  Receive Date: 20090822
  Receipt Date: 20081006
  Transmission Date: 20100115
  Serious: No
  Sender: FDA-Public Use
  Company Number: US-ABBOTT-08P-163-0479885-00

PATIENT
  Sex: Male
  Weight: 83.536 kg

DRUGS (9)
  1. NIASPAN [Suspect]
     Indication: DRUG USE FOR UNKNOWN INDICATION
     Route: 048
     Dates: start: 20080804
  2. INEGY [Concomitant]
     Indication: DRUG USE FOR UNKNOWN INDICATION
     Dosage: 10/20MG
     Route: 048
  3. ASPIRIN [Concomitant]
     Indication: DRUG USE FOR UNKNOWN INDICATION
     Route: 048
  4. CALCIUM-SANDOZ [Concomitant]
     Indication: DRUG USE FOR UNKNOWN INDICATION
     Route: 048
  5. FISH OIL [Concomitant]
     Indication: DRUG USE FOR UNKNOWN INDICATION
  6. VITIS VINIFERA EXTRACT [Concomitant]
     Indication: DRUG USE FOR UNKNOWN INDICATION
  7. OCULAR NUTRITION [Concomitant]
     Indication: DRUG USE FOR UNKNOWN INDICATION
  8. GLUCOSAMINE W/CHONDROITIN SULFATE [Concomitant]
     Indication: DRUG USE FOR UNKNOWN INDICATION
  9. MEGALAZINE [Concomitant]
     Indication: DRUG USE FOR UNKNOWN INDICATION

REACTIONS (4)
  - DYSPNOEA [None]
  - HICCUPS [None]
  - NAUSEA [None]
  - VISUAL ACUITY REDUCED [None]
